FAERS Safety Report 18278560 (Version 2)
Quarter: 2020Q3

REPORT INFORMATION
  Report Type: Spontaneous
  Country: US (occurrence: US)
  Receive Date: 20200917
  Receipt Date: 20200928
  Transmission Date: 20201103
  Serious: No
  Sender: FDA-Public Use
  Company Number: US-GLAXOSMITHKLINE-US2020183505

PATIENT
  Sex: Female

DRUGS (1)
  1. BENLYSTA [Suspect]
     Active Substance: BELIMUMAB
     Indication: SYSTEMIC LUPUS ERYTHEMATOSUS
     Dosage: 200 MG, WE
     Route: 058
     Dates: start: 202007

REACTIONS (6)
  - Wrong technique in device usage process [Unknown]
  - Exposure via skin contact [Unknown]
  - Injection site pain [Unknown]
  - Underdose [Unknown]
  - Extra dose administered [Unknown]
  - Accidental exposure to product [Unknown]
